FAERS Safety Report 24409650 (Version 2)
Quarter: 2024Q4

REPORT INFORMATION
  Report Type: Spontaneous
  Country: US (occurrence: US)
  Receive Date: 20241008
  Receipt Date: 20241213
  Transmission Date: 20250115
  Serious: No
  Sender: SANOFI AVENTIS
  Company Number: US-SA-2024SA287318

PATIENT
  Sex: Male
  Weight: 90.59 kg

DRUGS (5)
  1. DUPILUMAB [Suspect]
     Active Substance: DUPILUMAB
     Indication: Dermatitis atopic
     Dosage: 300 MG, QOW
     Route: 058
  2. BUPRENORPHINE AND NALOXONE [Concomitant]
     Active Substance: BUPRENORPHINE HYDROCHLORIDE\NALOXONE HYDROCHLORIDE
     Dosage: UNK
  3. NALOXONE [Concomitant]
     Active Substance: NALOXONE
     Dosage: UNK
  4. CLOBETASOL PROPIONATE [Concomitant]
     Active Substance: CLOBETASOL PROPIONATE
     Dosage: UNK
  5. LISINOPRIL [Concomitant]
     Active Substance: LISINOPRIL
     Dosage: UNK

REACTIONS (10)
  - Nail discolouration [Unknown]
  - Nail disorder [Unknown]
  - Onycholysis [Unknown]
  - Limb discomfort [Unknown]
  - Dermatitis atopic [Unknown]
  - Skin fissures [Unknown]
  - Dry skin [Unknown]
  - Skin haemorrhage [Unknown]
  - Product dose omission issue [Unknown]
  - Foot deformity [Unknown]
